FAERS Safety Report 9775436 (Version 2)
Quarter: 2014Q1

REPORT INFORMATION
  Report Type: Spontaneous
  Country: US (occurrence: US)
  Receive Date: 20131220
  Receipt Date: 20140318
  Transmission Date: 20141002
  Serious: No
  Sender: FDA-Public Use
  Company Number: US-GALDERMA-US13003432

PATIENT
  Age: 68 Year
  Sex: Female

DRUGS (11)
  1. MIRVASO (BRIMONIDINE) TOPICAL GEL, 0.33% [Suspect]
     Indication: ROSACEA
     Dosage: 0.33%
     Route: 061
     Dates: start: 20131022, end: 20131030
  2. ORACEA (DOXYCYCLINE, USP) CAPSULES 40 MG [Concomitant]
     Indication: ROSACEA
     Dosage: 40 MG
     Route: 048
     Dates: start: 20131022
  3. SYNTHYROID (LEVOTHYROXINE) [Concomitant]
     Indication: HYPOTHYROIDISM
     Dosage: 0.088 MG
     Route: 048
  4. NEXIUM (ESOMEPRAZOLE MAGNESIUM) [Concomitant]
     Indication: GASTROOESOPHAGEAL REFLUX DISEASE
     Dosage: 40 MG
     Route: 048
  5. BABY ASPIRIN [Concomitant]
     Dosage: 81 MG
     Route: 048
  6. CLARITIN (LORATADINE) [Concomitant]
     Indication: SEASONAL ALLERGY
     Route: 048
  7. BENADRYL (DIPHENHYDRAMINE) [Concomitant]
     Indication: SEASONAL ALLERGY
     Dosage: 25 MG
     Route: 048
  8. AVEENO FACIAL WASH [Concomitant]
     Indication: THERAPEUTIC SKIN CARE TOPICAL
     Route: 061
     Dates: start: 2003
  9. CLINIQUE [Concomitant]
     Indication: THERAPEUTIC SKIN CARE TOPICAL
     Route: 061
  10. COSMETICS [Concomitant]
     Route: 061
  11. VITAMIN D [Concomitant]
     Dosage: 2000 IU
     Route: 048

REACTIONS (8)
  - Rebound effect [Recovered/Resolved]
  - Condition aggravated [Recovered/Resolved]
  - Rash macular [Recovered/Resolved]
  - Swelling face [Recovered/Resolved]
  - Emotional disorder [Recovered/Resolved]
  - Skin burning sensation [Recovered/Resolved]
  - Pain of skin [Recovered/Resolved]
  - Erythema [Recovered/Resolved]
